FAERS Safety Report 8019118-X (Version None)
Quarter: 2012Q1

REPORT INFORMATION
  Report Type: 
  Country: None (occurrence: None)
  Receive Date: 20120103
  Receipt Date: 20111228
  Transmission Date: 20120608
  Serious: Yes (Other)
  Sender: FDA-Public Use
  Company Number: US-PURDUE-USA-2011-0079353

PATIENT
  Sex: Female

DRUGS (3)
  1. TIZANIDINE HCL [Concomitant]
     Indication: MUSCLE SPASMS
     Dosage: 2 MG, UNK
     Dates: start: 20110222
  2. BUTRANS [Suspect]
     Indication: PAIN
     Dosage: 10 MCG, Q1H
     Route: 062
     Dates: start: 20110405, end: 20110507
  3. TRAMADOL HCL [Concomitant]
     Indication: PAIN
     Dosage: 50 MG, UNK
     Dates: start: 20110222

REACTIONS (4)
  - APPLICATION SITE DISCOLOURATION [None]
  - SKIN DISORDER [None]
  - RASH [None]
  - APPLICATION SITE IRRITATION [None]
